FAERS Safety Report 20004133 (Version 1)
Quarter: 2021Q4

REPORT INFORMATION
  Report Type: Report from Study
  Country: IL (occurrence: IL)
  Receive Date: 20211027
  Receipt Date: 20211027
  Transmission Date: 20220303
  Serious: Yes (Hospitalization)
  Sender: FDA-Public Use
  Company Number: IL-002147023-NVSC2021IL236824

PATIENT

DRUGS (14)
  1. RUXOLITINIB [Suspect]
     Active Substance: RUXOLITINIB
     Indication: Myelofibrosis
     Dosage: 40 MG, QD (20 MG 2 IN 1 D)
     Route: 048
     Dates: start: 20201109, end: 20201111
  2. RUXOLITINIB [Suspect]
     Active Substance: RUXOLITINIB
     Dosage: 20 MG, QD (10 MG, 2 IN 1 D)
     Route: 048
     Dates: start: 20201112, end: 20201121
  3. RUXOLITINIB [Suspect]
     Active Substance: RUXOLITINIB
     Dosage: 40 MG, QD (20 MG, 2 IN 1 D)
     Route: 048
     Dates: start: 20201122, end: 20210102
  4. RUXOLITINIB [Suspect]
     Active Substance: RUXOLITINIB
     Dosage: 30 MG, QD (15 MG, 2 IN 1 D)
     Route: 048
     Dates: start: 20210103
  5. NAVITOCLAX [Suspect]
     Active Substance: NAVITOCLAX
     Indication: Product used for unknown indication
     Dosage: 1 DF, QD (1 IN 1 D)
     Route: 048
     Dates: start: 20201109
  6. PERCOCET [Concomitant]
     Active Substance: ACETAMINOPHEN\OXYCODONE HYDROCHLORIDE
     Indication: Non-cardiac chest pain
     Dosage: 5 MG, QD (5 MG 1 IN 1 D)
     Route: 048
     Dates: start: 20201116
  7. ATENOLOL [Concomitant]
     Active Substance: ATENOLOL
     Indication: Hypertension
     Dosage: 25 MG , QD (25 MG 1 IN 1 D)
     Route: 048
     Dates: start: 20201116
  8. FOLIC ACID [Concomitant]
     Active Substance: FOLIC ACID
     Indication: Folate deficiency
     Dosage: 5 MG, QD (1 IN 1 D)
     Route: 048
     Dates: start: 2019
  9. ASPIRIN [Concomitant]
     Active Substance: ASPIRIN
     Indication: Myeloproliferative neoplasm
     Dosage: 75 MG, QD (75 MG 1 IN 1 D)
     Route: 048
     Dates: start: 20201116
  10. AMLODIPINE [Concomitant]
     Active Substance: AMLODIPINE BESYLATE
     Indication: Hypertension
     Dosage: 170 MG (AMLODIPINE 10MG, VALSARTAN 160 MG, 1 IN 1 D)
     Route: 048
     Dates: start: 2007
  11. HYALURONATE SODIUM [Concomitant]
     Active Substance: HYALURONATE SODIUM
     Indication: Sjogren^s syndrome
     Dosage: 1 DRP, PRN
     Route: 047
     Dates: start: 2015
  12. DURATEARS [PARAFFIN, LIQUID;WHITE SOFT PARAFFIN;WOOL FAT] [Concomitant]
     Indication: Sjogren^s syndrome
     Dosage: 3.5 G (3.5 G, 1 IN 1 D)
     Route: 047
     Dates: start: 20201111
  13. ELETRIPTAN [Concomitant]
     Active Substance: ELETRIPTAN
     Indication: Migraine
     Dosage: 40 MG, PRN
     Route: 048
     Dates: start: 2000
  14. RESTASIS [Concomitant]
     Active Substance: CYCLOSPORINE
     Indication: Sjogren^s syndrome
     Dosage: 4 DRP (1 DROP, 4 IN 1 D)
     Route: 047

REACTIONS (8)
  - Arthralgia [Unknown]
  - Chills [Unknown]
  - Cough [Unknown]
  - Dyspnoea [Unknown]
  - Fatigue [Unknown]
  - Pyrexia [Recovering/Resolving]
  - Pneumonia [Not Recovered/Not Resolved]
  - Rhinorrhoea [Unknown]

NARRATIVE: CASE EVENT DATE: 20211004
